FAERS Safety Report 17029298 (Version 1)
Quarter: 2019Q4

REPORT INFORMATION
  Report Type: Spontaneous
  Country: GB (occurrence: GB)
  Receive Date: 20191114
  Receipt Date: 20191114
  Transmission Date: 20200122
  Serious: Yes (Other)
  Sender: FDA-Public Use
  Company Number: GB-AUROBINDO-AUR-APL-2019-072350

PATIENT
  Age: 38 Year
  Sex: Female
  Weight: 71.66 kg

DRUGS (1)
  1. PARACETAMOL TABLET [Suspect]
     Active Substance: ACETAMINOPHEN
     Indication: HEADACHE
     Dosage: 2000 MILLIGRAM
     Route: 048
     Dates: start: 20191015, end: 20191015

REACTIONS (4)
  - Urticaria [Recovered/Resolved]
  - Skin warm [Recovered/Resolved]
  - Paraesthesia [Recovered/Resolved]
  - Chills [Recovered/Resolved]

NARRATIVE: CASE EVENT DATE: 20191015
